FAERS Safety Report 10048405 (Version 1)
Quarter: 2014Q1

REPORT INFORMATION
  Report Type: Spontaneous
  Country: US (occurrence: US)
  Receive Date: 20140331
  Receipt Date: 20140331
  Transmission Date: 20141002
  Serious: No
  Sender: FDA-Public Use
  Company Number: US-BAYER-2014-046587

PATIENT
  Age: 20 Year
  Sex: Female
  Weight: 54 kg

DRUGS (1)
  1. ALEVE CAPLET [Suspect]

REACTIONS (2)
  - Extra dose administered [None]
  - Abdominal discomfort [Not Recovered/Not Resolved]
